FAERS Safety Report 6077087-6 (Version None)
Quarter: 2009Q1

REPORT INFORMATION
  Report Type: 
  Country: None (occurrence: None)
  Receive Date: 20090213
  Receipt Date: 20090205
  Transmission Date: 20090719
  Serious: Yes (Hospitalization, Disabling)
  Sender: FDA-Public Use
  Company Number: PHEH2008US08651

PATIENT
  Sex: Female
  Weight: 60.317 kg

DRUGS (1)
  1. RECLAST [Suspect]
     Dosage: 5 MG OVER 15 MIN
     Route: 042

REACTIONS (4)
  - ATRIAL FIBRILLATION [None]
  - CEREBRAL INFARCTION [None]
  - CEREBROVASCULAR ACCIDENT [None]
  - HEMIPARESIS [None]
